FAERS Safety Report 6244376-1 (Version None)
Quarter: 2009Q2

REPORT INFORMATION
  Report Type: 
  Country: None (occurrence: None)
  Receive Date: 20090625
  Receipt Date: 20090616
  Transmission Date: 20091009
  Serious: Yes (Other)
  Sender: FDA-Public Use
  Company Number: PHHY2009GB24682

PATIENT
  Sex: Male

DRUGS (1)
  1. EXELON [Suspect]
     Dosage: 6 MG, BID

REACTIONS (5)
  - AGITATION [None]
  - BEDRIDDEN [None]
  - CONFUSIONAL STATE [None]
  - FALL [None]
  - RESTLESSNESS [None]
